FAERS Safety Report 4435479-2 (Version None)
Quarter: 2004Q3

REPORT INFORMATION
  Report Type: 
  Country: None (occurrence: None)
  Receive Date: 20040826
  Receipt Date: 20040816
  Transmission Date: 20050211
  Serious: No
  Sender: FDA-Public Use
  Company Number: 04H-150-0271102-00

PATIENT
  Sex: 0

DRUGS (1)
  1. ATRACURIUM BESYLATE [Suspect]
     Indication: NEUROMUSCULAR BLOCKADE
     Dosage: 0.5 MG/ML, INTRAVENOUS
     Route: 042

REACTIONS (1)
  - ASPIRATION [None]
